FAERS Safety Report 6918230-3 (Version None)
Quarter: 2010Q3

REPORT INFORMATION
  Report Type: 
  Country: None (occurrence: None)
  Receive Date: 20100811
  Receipt Date: 20100728
  Transmission Date: 20110219
  Serious: Yes (Other)
  Sender: FDA-Public Use
  Company Number: US-RB-013260-10

PATIENT
  Age: 55 Year
  Sex: Female

DRUGS (1)
  1. MUCINEX D [Suspect]
     Indication: EAR INFECTION
     Route: 048
     Dates: start: 20100722

REACTIONS (5)
  - ANXIETY [None]
  - FEELING JITTERY [None]
  - INSOMNIA [None]
  - NERVOUSNESS [None]
  - OFF LABEL USE [None]
